FAERS Safety Report 22598901 (Version 1)
Quarter: 2023Q2

REPORT INFORMATION
  Report Type: Spontaneous
  Country: ES (occurrence: ES)
  Receive Date: 20230614
  Receipt Date: 20230614
  Transmission Date: 20230721
  Serious: Yes (Hospitalization)
  Sender: FDA-Public Use
  Company Number: ES-STRIDES ARCOLAB LIMITED-2023SP009318

PATIENT
  Age: 70 Year
  Sex: Male

DRUGS (2)
  1. METRONIDAZOLE [Suspect]
     Active Substance: METRONIDAZOLE
     Indication: Osteomyelitis
     Dosage: 500 MILLIGRAM, EVERY 8 HOURS
     Route: 065
  2. CIPROFLOXACIN [Concomitant]
     Active Substance: CIPROFLOXACIN
     Indication: Osteomyelitis
     Dosage: 500 MILLIGRAM, EVERY 12 HRS
     Route: 065

REACTIONS (3)
  - Oedema [Unknown]
  - Stress cardiomyopathy [Recovered/Resolved]
  - Neurotoxicity [Recovered/Resolved]
